FAERS Safety Report 5321729-7 (Version None)
Quarter: 2007Q2

REPORT INFORMATION
  Report Type: 
  Country: None (occurrence: None)
  Receive Date: 20070220
  Receipt Date: 20061009
  Transmission Date: 20071010
  Serious: No
  Sender: FDA-Public Use
  Company Number: TPA2006A01767

PATIENT
  Age: 66 Year
  Sex: Female
  Weight: 62.5964 kg

DRUGS (3)
  1. ROZEREM [Suspect]
     Indication: INSOMNIA
     Dosage: 8 MG, HS, PER ORAL
     Route: 048
     Dates: start: 20060930
  2. LEVOTHYROXINE SODIUM [Concomitant]
  3. XANAX [Concomitant]

REACTIONS (3)
  - FEELING ABNORMAL [None]
  - INITIAL INSOMNIA [None]
  - SLEEP DISORDER [None]
